FAERS Safety Report 8071202-0 (Version None)
Quarter: 2012Q1

REPORT INFORMATION
  Report Type: 
  Country: None (occurrence: None)
  Receive Date: 20120125
  Receipt Date: 20120119
  Transmission Date: 20120608
  Serious: Yes (Other)
  Sender: FDA-Public Use
  Company Number: PHHY2009CA00796

PATIENT
  Sex: Female

DRUGS (4)
  1. ZOLEDRONOC ACID [Suspect]
     Indication: OSTEOPOROSIS
     Dosage: UNK UKN, UNK
     Dates: start: 20080819
  2. PROLIA [Concomitant]
     Dosage: UNK UKN, UNK
  3. ZOLEDRONOC ACID [Suspect]
     Dosage: UNK UKN, UNK
     Route: 042
     Dates: start: 20101210
  4. ZOLEDRONOC ACID [Suspect]
     Dosage: UNK UKN, UNK
     Dates: start: 20091002

REACTIONS (8)
  - RIB FRACTURE [None]
  - HYPERSOMNIA [None]
  - DRUG ADMINISTRATION ERROR [None]
  - INFUSION SITE HAEMATOMA [None]
  - TOOTHACHE [None]
  - NASOPHARYNGITIS [None]
  - INFLUENZA [None]
  - CHEST PAIN [None]
